FAERS Safety Report 14592528 (Version 3)
Quarter: 2018Q2

REPORT INFORMATION
  Report Type: Report from Study
  Country: NZ (occurrence: NZ)
  Receive Date: 20180302
  Receipt Date: 20180412
  Transmission Date: 20180711
  Serious: Yes (Death)
  Sender: FDA-Public Use
  Company Number: NZ-MYLANLABS-2018M1005946

PATIENT
  Age: 63 Year
  Sex: Female

DRUGS (10)
  1. SINEMET [Concomitant]
     Active Substance: CARBIDOPA\LEVODOPA
     Dosage: UNK UNK, AM
     Route: 048
     Dates: start: 20101001
  2. DOMPERIDONE [Concomitant]
     Active Substance: DOMPERIDONE
     Indication: NAUSEA
     Dosage: 1 DF, PRN
     Route: 048
     Dates: start: 20110101
  3. SINEMET [Concomitant]
     Active Substance: CARBIDOPA\LEVODOPA
     Indication: PARKINSON^S DISEASE
     Dosage: UNK UNK, AM
     Route: 048
     Dates: start: 20101001
  4. CLOZARIL [Suspect]
     Active Substance: CLOZAPINE
     Indication: SCHIZOPHRENIA
     Dosage: 87 MG, UNK
     Route: 048
     Dates: start: 20170309
  5. SIMVASTATIN. [Concomitant]
     Active Substance: SIMVASTATIN
     Indication: LIPIDS ABNORMAL
     Dosage: 10 MG, UNK
     Route: 048
     Dates: start: 20150101
  6. ESCITALOPRAM [Concomitant]
     Active Substance: ESCITALOPRAM OXALATE
     Indication: AFFECTIVE DISORDER
     Dosage: 10 MG, UNK
     Route: 048
     Dates: start: 20140101
  7. QUETIAPINE. [Concomitant]
     Active Substance: QUETIAPINE
     Indication: DEMENTIA
     Dosage: 100 MG, UNK
     Route: 048
     Dates: start: 20110601
  8. CLOZARIL [Suspect]
     Active Substance: CLOZAPINE
     Indication: DEMENTIA
     Dosage: UNK, PM
     Route: 048
     Dates: start: 201705
  9. ASPIRIN. [Concomitant]
     Active Substance: ASPIRIN
     Indication: CARDIAC DISORDER
     Dosage: 100 MG, UNK
     Route: 048
     Dates: start: 20150101
  10. CLOZARIL [Suspect]
     Active Substance: CLOZAPINE
     Indication: PARKINSON^S DISEASE

REACTIONS (4)
  - Neutrophil count increased [Unknown]
  - White blood cell count increased [Unknown]
  - Off label use [Unknown]
  - Cardiac arrest [Fatal]

NARRATIVE: CASE EVENT DATE: 201705
